FAERS Safety Report 4979510-4 (Version None)
Quarter: 2006Q2

REPORT INFORMATION
  Report Type: 
  Country: None (occurrence: None)
  Receive Date: 20060421
  Receipt Date: 20060412
  Transmission Date: 20061013
  Serious: Yes (Other)
  Sender: FDA-Public Use
  Company Number: 2006AP01770

PATIENT
  Age: 59 Year
  Sex: Female

DRUGS (5)
  1. DIPRIVAN [Suspect]
     Indication: INDUCTION OF ANAESTHESIA
     Route: 042
  2. CARBOCAIN [Suspect]
     Indication: MAINTENANCE OF ANAESTHESIA
     Route: 008
  3. VECURONIUM BROMIDE [Concomitant]
     Indication: INTUBATION
  4. OXYGEN [Concomitant]
     Indication: MAINTENANCE OF ANAESTHESIA
     Route: 055
  5. SEVOFLURANE [Concomitant]
     Indication: MAINTENANCE OF ANAESTHESIA
     Route: 055

REACTIONS (7)
  - BLOOD CORTISOL INCREASED [None]
  - BLOOD PRESSURE SYSTOLIC INCREASED [None]
  - BODY TEMPERATURE DECREASED [None]
  - DEHYDRATION [None]
  - DRUG INEFFECTIVE [None]
  - POLYURIA [None]
  - THIRST [None]
